FAERS Safety Report 6780392-9 (Version None)
Quarter: 2010Q2

REPORT INFORMATION
  Report Type: 
  Country: None (occurrence: None)
  Receive Date: 20100618
  Receipt Date: 20100614
  Transmission Date: 20101027
  Serious: Yes (Other)
  Sender: FDA-Public Use
  Company Number: US-RB-011520-10

PATIENT
  Age: 37 Year
  Sex: Male

DRUGS (7)
  1. SUBUTEX [Suspect]
     Indication: PAIN
     Route: 060
     Dates: end: 20100606
  2. SUBOXONE [Suspect]
     Indication: PAIN
     Route: 060
     Dates: start: 20070101
  3. SUBOXONE [Suspect]
     Route: 060
     Dates: start: 20100607
  4. PROVIGIL [Suspect]
     Dosage: DOSING DETAILS UNKNOWN
     Route: 065
  5. PREVACID [Concomitant]
     Dosage: DOSING DETAILS UNKNOWN
     Route: 065
  6. REMERON [Concomitant]
     Dosage: DOSING DETAILS UNKNOWN
     Route: 065
  7. REMERON [Concomitant]
     Indication: DEPRESSION
     Dosage: DOSING DETAILS UNKNOWN
     Route: 065

REACTIONS (4)
  - BLOOD TESTOSTERONE DECREASED [None]
  - CONVULSION [None]
  - HEPATITIS C [None]
  - OVERDOSE [None]
